FAERS Safety Report 10693520 (Version 2)
Quarter: 2015Q1

REPORT INFORMATION
  Report Type: Spontaneous
  Country: US (occurrence: US)
  Receive Date: 20150106
  Receipt Date: 20150217
  Transmission Date: 20150721
  Serious: Yes (Hospitalization)
  Sender: FDA-Public Use
  Company Number: US-UNITED THERAPEUTICS-UNT-2014-012926

PATIENT
  Age: 84 Year
  Sex: Male
  Weight: 78.91 kg

DRUGS (1)
  1. REMODULIN [Suspect]
     Active Substance: TREPROSTINIL
     Indication: PULMONARY ARTERIAL HYPERTENSION
     Dosage: 0.036 ?G/KG, CONTINUING
     Route: 058
     Dates: start: 20140331

REACTIONS (9)
  - Atrial fibrillation [Unknown]
  - Drug dose omission [Unknown]
  - Dizziness [Unknown]
  - Tremor [Unknown]
  - Device dislocation [Unknown]
  - Somnolence [Unknown]
  - Oxygen supplementation [Unknown]
  - Hypotension [Unknown]
  - Impaired healing [Unknown]

NARRATIVE: CASE EVENT DATE: 2014
